FAERS Safety Report 4293902-0 (Version None)
Quarter: 2004Q1

REPORT INFORMATION
  Report Type: 
  Country: None (occurrence: None)
  Receive Date: 20040126
  Receipt Date: 20031009
  Transmission Date: 20041129
  Serious: No
  Sender: FDA-Public Use
  Company Number: USA031049455

PATIENT
  Age: 66 Year
  Sex: Female

DRUGS (5)
  1. FORTEO [Suspect]
     Indication: OSTEOPOROSIS
     Dosage: 20 UG/DAY
  2. VIOXX [Concomitant]
  3. TOPROL-XL [Concomitant]
  4. LESCOL [Concomitant]
  5. ZELNORM (ZELNORM) [Concomitant]

REACTIONS (3)
  - BONE PAIN [None]
  - FATIGUE [None]
  - MYALGIA [None]
